FAERS Safety Report 11202283 (Version 1)
Quarter: 2015Q2

REPORT INFORMATION
  Report Type: Spontaneous
  Country: US (occurrence: None)
  Receive Date: 20150608
  Receipt Date: 20150608
  Transmission Date: 20150821
  Serious: No
  Sender: FDA-Public Use
  Company Number: 2015TUS001249

PATIENT
  Age: 41 Year
  Sex: Female

DRUGS (2)
  1. BRINTELLIX [Suspect]
     Active Substance: VORTIOXETINE HYDROBROMIDE
     Indication: MAJOR DEPRESSION
     Route: 048
     Dates: start: 201409, end: 201501
  2. ATIVAN [Concomitant]
     Active Substance: LORAZEPAM

REACTIONS (4)
  - Muscle tightness [None]
  - Influenza [None]
  - Migraine [None]
  - Headache [None]

NARRATIVE: CASE EVENT DATE: 201501
